FAERS Safety Report 10670855 (Version 1)
Quarter: 2014Q4

REPORT INFORMATION
  Report Type: Spontaneous
  Country: US (occurrence: US)
  Receive Date: 20141223
  Receipt Date: 20141223
  Transmission Date: 20150529
  Serious: No
  Sender: FDA-Public Use
  Company Number: US-PFIZER INC-2014352458

PATIENT
  Age: 86 Year
  Sex: Male

DRUGS (1)
  1. INLYTA [Suspect]
     Active Substance: AXITINIB
     Dosage: 3 TABLETS (3 TABLETS OF 1 MG), 2X/DAY
     Route: 048
     Dates: start: 201411

REACTIONS (5)
  - Ageusia [Unknown]
  - Diarrhoea [Unknown]
  - Weight decreased [Recovering/Resolving]
  - Constipation [Unknown]
  - Decreased appetite [Recovered/Resolved]
